FAERS Safety Report 6428753-1 (Version None)
Quarter: 2009Q4

REPORT INFORMATION
  Report Type: 
  Country: None (occurrence: None)
  Receive Date: 20091105
  Receipt Date: 20091029
  Transmission Date: 20100525
  Serious: Yes (Death)
  Sender: FDA-Public Use
  Company Number: FR-AVENTIS-200914023FR

PATIENT
  Age: 70 Day
  Sex: Female

DRUGS (6)
  1. LASIX [Suspect]
     Indication: VENTRICULAR SEPTAL DEFECT
     Route: 048
     Dates: start: 20090907, end: 20091012
  2. LASIX [Suspect]
     Indication: ATRIAL SEPTAL DEFECT
     Route: 048
     Dates: start: 20090907, end: 20091012
  3. LOPRIL                             /00498401/ [Suspect]
     Indication: VENTRICULAR SEPTAL DEFECT
     Route: 048
     Dates: start: 20090907, end: 20091012
  4. LOPRIL                             /00498401/ [Suspect]
     Indication: ATRIAL SEPTAL DEFECT
     Route: 048
     Dates: start: 20090907, end: 20091012
  5. PREVENAR                           /00496601/ [Suspect]
     Indication: PROPHYLAXIS
     Route: 030
     Dates: start: 20091012, end: 20091012
  6. PENTAVAC                           /01416401/ [Suspect]
     Indication: PROPHYLAXIS
     Route: 030
     Dates: start: 20091012, end: 20091012

REACTIONS (1)
  - DEATH [None]
